FAERS Safety Report 4578561-1 (Version None)
Quarter: 2005Q1

REPORT INFORMATION
  Report Type: 
  Country: None (occurrence: None)
  Receive Date: 20050204
  Receipt Date: 20050204
  Transmission Date: 20050727
  Serious: Yes (Other)
  Sender: FDA-Public Use
  Company Number: None

PATIENT
  Age: 39 Year
  Sex: Female
  Weight: 95.709 kg

DRUGS (2)
  1. AMITRIPTYLINE HCL [Suspect]
     Indication: DEPRESSION
     Dosage: 25MG    1 OR 2   BEDTIME   ORAL
     Route: 048
     Dates: start: 20030203, end: 20050203
  2. AMITRIPTYLINE HCL [Suspect]
     Indication: INSOMNIA
     Dosage: 25MG    1 OR 2   BEDTIME   ORAL
     Route: 048
     Dates: start: 20030203, end: 20050203

REACTIONS (4)
  - ARRHYTHMIA [None]
  - ECHOCARDIOGRAM ABNORMAL [None]
  - HEART RATE IRREGULAR [None]
  - PALPITATIONS [None]
